FAERS Safety Report 5208654-7 (Version None)
Quarter: 2007Q1

REPORT INFORMATION
  Report Type: 
  Country: None (occurrence: None)
  Receive Date: 20070116
  Receipt Date: 20070104
  Transmission Date: 20070707
  Serious: Yes (Hospitalization, Other)
  Sender: FDA-Public Use
  Company Number: PHNU2006DE02343

PATIENT
  Sex: Female

DRUGS (3)
  1. LEPONEX [Suspect]
     Indication: SCHIZOPHRENIA, PARANOID TYPE
     Dosage: UP TO 600 MG/DAY
     Route: 048
     Dates: start: 19820101
  2. LEPONEX [Suspect]
     Dosage: 700 MG/DAY
     Route: 048
     Dates: start: 20060606
  3. LEPONEX [Suspect]
     Dosage: 100 MG/DAY
     Route: 048

REACTIONS (4)
  - COLONOSCOPY ABNORMAL [None]
  - COMPUTERISED TOMOGRAM ABNORMAL [None]
  - GASTROINTESTINAL HYPOMOTILITY [None]
  - MEGACOLON [None]
